FAERS Safety Report 23066898 (Version 4)
Quarter: 2023Q4

REPORT INFORMATION
  Report Type: Spontaneous
  Country: GR (occurrence: GR)
  Receive Date: 20231016
  Receipt Date: 20231222
  Transmission Date: 20240109
  Serious: Yes (Other)
  Sender: FDA-Public Use
  Company Number: GR-TAKEDA-2023TUS097502

PATIENT
  Age: 16 Year
  Sex: Male

DRUGS (4)
  1. HYQVIA [Suspect]
     Active Substance: HUMAN IMMUNOGLOBULIN G\HYALURONIDASE (HUMAN RECOMBINANT)
     Indication: Hypogammaglobulinaemia
     Dosage: 250 MILLILITER, Q4WEEKS
     Route: 065
  2. IBUPROFEN [Concomitant]
     Active Substance: IBUPROFEN
     Indication: Migraine
     Dosage: UNK
     Route: 065
  3. ACETAMINOPHEN [Concomitant]
     Active Substance: ACETAMINOPHEN
     Indication: Migraine
     Dosage: UNK
     Route: 065
  4. HUMIRA [Concomitant]
     Active Substance: ADALIMUMAB
     Indication: Crohn^s disease
     Dosage: UNK
     Route: 065

REACTIONS (4)
  - Epistaxis [Not Recovered/Not Resolved]
  - Migraine [Not Recovered/Not Resolved]
  - Crohn^s disease [Unknown]
  - Product container issue [Unknown]

NARRATIVE: CASE EVENT DATE: 20231008
